FAERS Safety Report 25971313 (Version 1)
Quarter: 2025Q4

REPORT INFORMATION
  Report Type: Spontaneous
  Country: JP (occurrence: JP)
  Receive Date: 20251028
  Receipt Date: 20251028
  Transmission Date: 20260118
  Serious: Yes (Hospitalization)
  Sender: BIOMARIN
  Company Number: JP-BIOMARINAP-JP-2025-169646

PATIENT
  Age: 1 Year
  Sex: Male

DRUGS (1)
  1. VOXZOGO [Suspect]
     Active Substance: VOSORITIDE
     Indication: Osteochondrodysplasia
     Dosage: 0.4 MG, QD
     Dates: start: 20250417

REACTIONS (2)
  - Cerebral ventricle dilatation [Not Recovered/Not Resolved]
  - Paralysis [Not Recovered/Not Resolved]
